FAERS Safety Report 8340232-3 (Version None)
Quarter: 2012Q2

REPORT INFORMATION
  Report Type: 
  Country: None (occurrence: None)
  Receive Date: 20120507
  Receipt Date: 20120503
  Transmission Date: 20120825
  Serious: Yes (Life-Threatening, Hospitalization)
  Sender: FDA-Public Use
  Company Number: CL-BAYER-2012-037929

PATIENT
  Age: 51 Year
  Sex: Female

DRUGS (3)
  1. ANTIHISTAMINES [Concomitant]
  2. ESTRADIOL VALERATE/DIENOGEST [Suspect]
     Dosage: UNK
     Route: 048
     Dates: start: 20110301, end: 20120301
  3. ANTIBIOTICS [Concomitant]
     Dosage: UNK

REACTIONS (5)
  - HAEMORRHAGIC TRANSFORMATION STROKE [None]
  - CRANIOCEREBRAL INJURY [None]
  - ROAD TRAFFIC ACCIDENT [None]
  - TRANSVERSE SINUS THROMBOSIS [None]
  - BRAIN OEDEMA [None]
